FAERS Safety Report 13089125 (Version 1)
Quarter: 2017Q1

REPORT INFORMATION
  Report Type: Spontaneous
  Country: US (occurrence: US)
  Receive Date: 20170105
  Receipt Date: 20170105
  Transmission Date: 20170428
  Serious: Yes (Life-Threatening, Hospitalization, Disabling)
  Sender: FDA-Public Use
  Company Number: None

PATIENT
  Age: 57 Year
  Sex: Female
  Weight: 61.2 kg

DRUGS (13)
  1. TRAMADOL. [Concomitant]
     Active Substance: TRAMADOL
  2. EXCEDRIN EXTRA STRENGH [Concomitant]
  3. RANITIDINE. [Concomitant]
     Active Substance: RANITIDINE
  4. MULTIVITAMIN [Concomitant]
     Active Substance: VITAMINS
  5. NORCO [Concomitant]
     Active Substance: ACETAMINOPHEN\HYDROCODONE BITARTRATE
  6. PROBIOTIC [Concomitant]
     Active Substance: PROBIOTICS NOS
  7. AMLODIPINE BESYLATE. [Concomitant]
     Active Substance: AMLODIPINE BESYLATE
  8. PREDNISONE. [Concomitant]
     Active Substance: PREDNISONE
  9. FUROSIMIDE [Concomitant]
     Active Substance: FUROSEMIDE
  10. ENBREL [Concomitant]
     Active Substance: ETANERCEPT
  11. RECLAST [Suspect]
     Active Substance: ZOLEDRONIC ACID
     Indication: OSTEOPOROSIS
     Dosage: ?          OTHER FREQUENCY:ONCE PER YEAR FOR?INTRAVENOUS (NOT OTHERWISE SPECIFIED)
     Route: 042
     Dates: start: 20161024, end: 20161024
  12. SIMVASTATIN. [Concomitant]
     Active Substance: SIMVASTATIN
  13. BENADRYL [Concomitant]
     Active Substance: DIPHENHYDRAMINE HYDROCHLORIDE

REACTIONS (14)
  - Confusional state [None]
  - Asthenia [None]
  - Fatigue [None]
  - Bedridden [None]
  - Vomiting [None]
  - Protein urine present [None]
  - Nausea [None]
  - Inflammation [None]
  - Peripheral swelling [None]
  - Cholelithiasis [None]
  - Lethargy [None]
  - Musculoskeletal chest pain [None]
  - Acute kidney injury [None]
  - Weight decreased [None]

NARRATIVE: CASE EVENT DATE: 20161024
